FAERS Safety Report 7378233-4 (Version None)
Quarter: 2011Q1

REPORT INFORMATION
  Report Type: 
  Country: None (occurrence: None)
  Receive Date: 20110317
  Receipt Date: 20110307
  Transmission Date: 20110831
  Serious: Yes (Death, Hospitalization)
  Sender: FDA-Public Use
  Company Number: UTC-005580

PATIENT
  Age: 53 Year

DRUGS (1)
  1. REMODULIN [Suspect]
     Indication: PULMONARY HYPERTENSION
     Dosage: (1 IN 1 MIN),INTRAVENOUS
     Route: 042
     Dates: start: 20100818

REACTIONS (3)
  - RENAL FAILURE ACUTE [None]
  - FLUSHING [None]
  - HYPOTENSION [None]
